FAERS Safety Report 5592910-7 (Version None)
Quarter: 2008Q1

REPORT INFORMATION
  Report Type: 
  Country: None (occurrence: None)
  Receive Date: 20080114
  Receipt Date: 20080114
  Transmission Date: 20080703
  Serious: No
  Sender: FDA-Public Use
  Company Number: None

PATIENT
  Age: 41 Year
  Sex: Female
  Weight: 59.4212 kg

DRUGS (1)
  1. CHANTIX [Suspect]
     Indication: SMOKING CESSATION THERAPY
     Dosage: 2 TABLETS  DAILY  PO
     Route: 048
     Dates: start: 20071102, end: 20080109

REACTIONS (10)
  - ABNORMAL DREAMS [None]
  - ANGER [None]
  - CONSTIPATION [None]
  - DEPRESSION [None]
  - FEELING ABNORMAL [None]
  - FLATULENCE [None]
  - INSOMNIA [None]
  - NAUSEA [None]
  - SUICIDAL IDEATION [None]
  - VIOLENCE-RELATED SYMPTOM [None]
